FAERS Safety Report 7622062-0 (Version None)
Quarter: 2011Q3

REPORT INFORMATION
  Report Type: 
  Country: None (occurrence: None)
  Receive Date: 20110720
  Receipt Date: 20101124
  Transmission Date: 20111222
  Serious: Yes (Other)
  Sender: FDA-Public Use
  Company Number: NZ-BAYER-201047405GPV

PATIENT
  Sex: Female

DRUGS (2)
  1. MIRENA [Suspect]
     Dosage: UNK
     Route: 015
     Dates: start: 20040101, end: 20090201
  2. MIRENA [Suspect]
     Indication: MENORRHAGIA
     Dates: start: 20090201, end: 20101115

REACTIONS (1)
  - DEVICE DISLOCATION [None]
